FAERS Safety Report 24614502 (Version 1)
Quarter: 2024Q4

REPORT INFORMATION
  Report Type: Report from Study
  Country: FR (occurrence: FR)
  Receive Date: 20241113
  Receipt Date: 20241113
  Transmission Date: 20250114
  Serious: Yes (Other)
  Sender: BIOGEN
  Company Number: FR-BIOGEN-2024BI01273295

PATIENT
  Sex: Female
  Weight: 46 kg

DRUGS (1)
  1. OMAVELOXOLONE [Suspect]
     Active Substance: OMAVELOXOLONE
     Indication: Friedreich^s ataxia
     Dosage: PLANNED POSOLOGY: 150MG ONCE PER DAY (3 CAPSULES OF 50MG) PLANNED DURATION: 12 MONTHS
     Route: 050
     Dates: start: 20240507

REACTIONS (1)
  - Hepatic cytolysis [Unknown]
